FAERS Safety Report 8404101 (Version 2)
Quarter: 2013Q2

REPORT INFORMATION
  Report Type: Spontaneous
  Country: US (occurrence: None)
  Receive Date: 20111227
  Receipt Date: 20120426
  Transmission Date: 20140414
  Serious: Yes (Other)
  Sender: FDA-Public Use
  Company Number: PHEH2011US07030

PATIENT
  Sex: Female

DRUGS (7)
  1. GILENYA [Suspect]
     Indication: RELAPSING-REMITTING MULTIPLE SCLEROSIS
     Dosage: 0.5 MG, ORAL
     Route: 048
     Dates: start: 20111014, end: 20111014
  2. HYDRODIURIL [Concomitant]
  3. MICROZIDE [Concomitant]
  4. INSPRA [Concomitant]
  5. NORVASC [Concomitant]
  6. DESYREL [Concomitant]
  7. DEPO-PROVERA [Concomitant]

REACTIONS (2)
  - ATRIOVENTRICULAR BLOCK FIRST DEGREE [None]
  - Heart rate decreased [None]
